FAERS Safety Report 8625138-4 (Version None)
Quarter: 2012Q3

REPORT INFORMATION
  Report Type: 
  Country: None (occurrence: None)
  Receive Date: 20120827
  Receipt Date: 20120816
  Transmission Date: 20120928
  Serious: Yes (Hospitalization)
  Sender: FDA-Public Use
  Company Number: NL-CELGENEUS-114-21880-12060482

PATIENT
  Sex: Male
  Weight: 87 kg

DRUGS (7)
  1. DAUNORUBICIN HCL [Suspect]
     Route: 041
     Dates: start: 20120516
  2. REVLIMID [Suspect]
     Route: 048
     Dates: start: 20120516, end: 20120531
  3. DAUNORUBICIN HCL [Suspect]
     Route: 041
     Dates: start: 20120516
  4. CYTARABINE [Suspect]
     Route: 041
     Dates: start: 20120516
  5. CYTARABINE [Suspect]
     Route: 041
     Dates: start: 20120516
  6. FLUCONAZOLE [Concomitant]
     Indication: PROPHYLAXIS
     Dosage: 400 MILLIGRAM
     Route: 048
     Dates: start: 20120516, end: 20120531
  7. CIPROFLOXACIN HCL [Concomitant]
     Indication: PROPHYLAXIS
     Dosage: 1000 MILLIGRAM
     Route: 048
     Dates: start: 20120516, end: 20120531

REACTIONS (1)
  - HEPATIC FUNCTION ABNORMAL [None]
